FAERS Safety Report 10252593 (Version 1)
Quarter: 2014Q2

REPORT INFORMATION
  Report Type: Spontaneous
  Country: US (occurrence: US)
  Receive Date: 20140623
  Receipt Date: 20140623
  Transmission Date: 20141212
  Serious: No
  Sender: FDA-Public Use
  Company Number: US-B.I. PHARMACEUTICALS,INC./RIDGEFIELD-2014-BI-26991BP

PATIENT
  Sex: Female

DRUGS (12)
  1. GILOTRIF [Suspect]
     Indication: NON-SMALL CELL LUNG CANCER
     Dosage: 40 MG
     Route: 048
     Dates: start: 20140513, end: 20140611
  2. ADVIL [Concomitant]
     Dosage: FORMULATION: CAPLET
     Route: 048
  3. CALCIUM [Concomitant]
     Route: 048
  4. CLARITIN [Concomitant]
     Route: 048
  5. BIOTIN [Concomitant]
     Route: 048
  6. BLEPHAMIDE [Concomitant]
     Dosage: (EYE DROPS)
     Route: 050
  7. CO-ENZYME Q10 [Concomitant]
     Route: 048
  8. ASPIRIN [Concomitant]
     Dosage: 81 MG
     Route: 048
  9. MULTIVITAMIN [Concomitant]
     Route: 048
  10. RESTASIS [Concomitant]
     Dosage: (EYE DROPS)
     Route: 050
  11. LESCOL [Concomitant]
     Route: 048
  12. SUDAFED [Concomitant]
     Route: 048

REACTIONS (4)
  - Urticaria [Not Recovered/Not Resolved]
  - Acne [Not Recovered/Not Resolved]
  - Rash pruritic [Not Recovered/Not Resolved]
  - Off label use [Not Recovered/Not Resolved]
